FAERS Safety Report 23034443 (Version 1)
Quarter: 2023Q4

REPORT INFORMATION
  Report Type: Spontaneous
  Country: FR (occurrence: FR)
  Receive Date: 20231005
  Receipt Date: 20231005
  Transmission Date: 20240109
  Serious: Yes (Other)
  Sender: FDA-Public Use
  Company Number: FR-SUN PHARMACEUTICAL INDUSTRIES LTD-2023RR-410786

PATIENT
  Age: 93 Year
  Sex: Female

DRUGS (1)
  1. ALLOPURINOL [Suspect]
     Active Substance: ALLOPURINOL
     Indication: Gouty tophus
     Dosage: SPOT TREATMENT
     Route: 048
     Dates: start: 20230516

REACTIONS (4)
  - Dermatitis exfoliative generalised [Recovered/Resolved]
  - Product dispensing error [Recovered/Resolved]
  - Product prescribing error [Recovered/Resolved]
  - Contraindicated product administered [Recovered/Resolved]

NARRATIVE: CASE EVENT DATE: 20230517
